FAERS Safety Report 4285536-9 (Version None)
Quarter: 2004Q1

REPORT INFORMATION
  Report Type: 
  Country: None (occurrence: None)
  Receive Date: 20040203
  Receipt Date: 20040123
  Transmission Date: 20041129
  Serious: Yes (Other)
  Sender: FDA-Public Use
  Company Number: US-JNJFOC-20040104816

PATIENT
  Age: 46 Year
  Sex: Male
  Weight: 97.5234 kg

DRUGS (6)
  1. REMICADE [Suspect]
     Indication: RHEUMATOID ARTHRITIS
     Dosage: 650 MG, INTRAVENOUS
     Route: 042
  2. CELEBREX [Concomitant]
  3. ULTRAM [Concomitant]
  4. AMBIEN [Concomitant]
  5. ZYRTEC [Concomitant]
  6. AMARYL [Concomitant]

REACTIONS (3)
  - BLOOD CHOLESTEROL INCREASED [None]
  - DIABETES MELLITUS [None]
  - HEPATIC ENZYME INCREASED [None]
